FAERS Safety Report 24685497 (Version 2)
Quarter: 2024Q4

REPORT INFORMATION
  Report Type: Spontaneous
  Country: US (occurrence: US)
  Receive Date: 20241202
  Receipt Date: 20241223
  Transmission Date: 20250115
  Serious: No
  Sender: DAIICHI
  Company Number: US-DAIICHI SANKYO, INC.-DS-2024-110727-USAA

PATIENT
  Sex: Female

DRUGS (1)
  1. ENHERTU [Suspect]
     Active Substance: FAM-TRASTUZUMAB DERUXTECAN-NXKI
     Indication: Breast cancer metastatic
     Dosage: UNK
     Route: 065

REACTIONS (20)
  - Feeling abnormal [Unknown]
  - Feeling abnormal [Unknown]
  - Stress [Unknown]
  - Scan abnormal [Unknown]
  - Anxiety [Unknown]
  - Hair growth rate abnormal [Unknown]
  - Trichorrhexis [Unknown]
  - Neoplasm [Unknown]
  - Nerve injury [Unknown]
  - Pupillary disorder [Unknown]
  - Weight increased [Unknown]
  - Myalgia [Unknown]
  - Headache [Unknown]
  - Alopecia [Unknown]
  - Alopecia [Unknown]
  - Visual impairment [Unknown]
  - Fatigue [Unknown]
  - Nausea [Unknown]
  - Nausea [Unknown]
  - Intentional product use issue [Unknown]

NARRATIVE: CASE EVENT DATE: 20231001
